FAERS Safety Report 8508722-8 (Version None)
Quarter: 2012Q3

REPORT INFORMATION
  Report Type: 
  Country: None (occurrence: None)
  Receive Date: 20120713
  Receipt Date: 20120705
  Transmission Date: 20120928
  Serious: Yes (Hospitalization, Other)
  Sender: FDA-Public Use
  Company Number: US-ASTRAZENECA-2012SE46222

PATIENT
  Age: 61 Year
  Sex: Male

DRUGS (2)
  1. NEXIUM [Suspect]
     Route: 048
  2. PRILOSEC [Suspect]
     Route: 048

REACTIONS (18)
  - CORONARY ARTERY DISEASE [None]
  - PELVIC FRACTURE [None]
  - HAEMATEMESIS [None]
  - NODULE [None]
  - OFF LABEL USE [None]
  - HIATUS HERNIA [None]
  - HYPERLIPIDAEMIA [None]
  - HICCUPS [None]
  - DEPRESSION [None]
  - DRUG INEFFECTIVE [None]
  - OESOPHAGEAL STENOSIS [None]
  - HEPATITIS C [None]
  - GASTROOESOPHAGEAL REFLUX DISEASE [None]
  - DECREASED APPETITE [None]
  - HYPERTENSION [None]
  - PSYCHOTIC DISORDER [None]
  - ABDOMINAL PAIN [None]
  - ANAEMIA [None]
